FAERS Safety Report 9472809 (Version 2)
Quarter: 2013Q3

REPORT INFORMATION
  Report Type: Report from Study
  Country: ES (occurrence: ES)
  Receive Date: 20130823
  Receipt Date: 20130823
  Transmission Date: 20140515
  Serious: Yes (Hospitalization, Other)
  Sender: FDA-Public Use
  Company Number: PHHO2010ES14943

PATIENT
  Age: 65 Year
  Sex: Male
  Weight: 104 kg

DRUGS (7)
  1. PLACEBO [Suspect]
     Indication: CORONARY ARTERY DISEASE
     Dosage: UNK
     Route: 048
     Dates: start: 20100623
  2. ALISKIREN [Suspect]
     Indication: CORONARY ARTERY DISEASE
     Dosage: 150 MG, UNK
  3. ENALAPRIL [Concomitant]
     Indication: HYPERTENSION
  4. LOBIVON [Concomitant]
     Indication: HYPERTENSION
  5. ADIRO [Concomitant]
     Dosage: 100 MG, UNK
     Route: 048
     Dates: start: 20020615
  6. CLOPIDOGREL [Concomitant]
  7. SIMVASTATIN [Concomitant]
     Indication: DYSLIPIDAEMIA

REACTIONS (2)
  - Coronary artery restenosis [Recovered/Resolved]
  - Angina pectoris [Recovered/Resolved]
